FAERS Safety Report 6433317-X (Version None)
Quarter: 2009Q4

REPORT INFORMATION
  Report Type: 
  Country: None (occurrence: None)
  Receive Date: 20091109
  Receipt Date: 20091028
  Transmission Date: 20100525
  Serious: Yes (Hospitalization, Other)
  Sender: FDA-Public Use
  Company Number: PHHY2008JP11790

PATIENT
  Age: 56 Year
  Sex: Male

DRUGS (3)
  1. TEGRETOL [Suspect]
     Indication: TRIGEMINAL NEURALGIA
     Dosage: 300 MG/DAY
     Route: 048
     Dates: start: 20071007, end: 20071025
  2. MEXILETINE HYDROCHLORIDE [Suspect]
     Dosage: 200 MG
     Route: 048
     Dates: start: 20091019, end: 20091027
  3. AMITRIPTYLINE HYDROCHLORIDE [Concomitant]
     Dosage: 20 MG
     Route: 048

REACTIONS (8)
  - CHOLECYSTITIS [None]
  - DRUG RASH WITH EOSINOPHILIA AND SYSTEMIC SYMPTOMS [None]
  - HEPATIC FUNCTION ABNORMAL [None]
  - LEUKOCYTOSIS [None]
  - LYMPHADENOPATHY [None]
  - LYMPHOCYTE MORPHOLOGY ABNORMAL [None]
  - PYREXIA [None]
  - RASH MACULO-PAPULAR [None]
